FAERS Safety Report 10227697 (Version 1)
Quarter: 2014Q2

REPORT INFORMATION
  Report Type: Spontaneous
  Country: US (occurrence: None)
  Receive Date: 20140609
  Receipt Date: 20140609
  Transmission Date: 20141212
  Serious: Yes (Disabling)
  Sender: FDA-Public Use
  Company Number: None

PATIENT
  Age: 47 Year
  Sex: Female
  Weight: 77.11 kg

DRUGS (1)
  1. METRONIDAZOLE [Suspect]
     Indication: BACTERIAL INFECTION
     Dosage: 1 PILL TWICE DAILY TAKEN BY MOUTH
     Route: 048
     Dates: start: 20140602, end: 20140606

REACTIONS (8)
  - Dizziness [None]
  - Nausea [None]
  - Swollen tongue [None]
  - Hypoaesthesia oral [None]
  - Confusional state [None]
  - Speech disorder [None]
  - Balance disorder [None]
  - Abdominal pain upper [None]
